FAERS Safety Report 6239520-6 (Version None)
Quarter: 2009Q2

REPORT INFORMATION
  Report Type: 
  Country: None (occurrence: None)
  Receive Date: 20090622
  Receipt Date: 20090612
  Transmission Date: 20091009
  Serious: Yes (Other)
  Sender: FDA-Public Use
  Company Number: US-AMGEN-US352082

PATIENT
  Age: 66 Year
  Sex: Male
  Weight: 85 kg

DRUGS (5)
  1. ENBREL [Suspect]
     Indication: RHEUMATOID ARTHRITIS
     Dosage: WEEKLY
     Route: 065
     Dates: end: 20060101
  2. ATENOLOL [Concomitant]
     Route: 065
  3. FLUVASTATIN [Concomitant]
     Route: 065
  4. METFORMIN HCL [Concomitant]
     Route: 065
  5. LISINOPRIL [Concomitant]
     Route: 065

REACTIONS (1)
  - MYASTHENIA GRAVIS [None]
